FAERS Safety Report 20489488 (Version 1)
Quarter: 2022Q1

REPORT INFORMATION
  Report Type: Spontaneous
  Country: AR (occurrence: AR)
  Receive Date: 20220218
  Receipt Date: 20220218
  Transmission Date: 20220423
  Serious: Yes (Other)
  Sender: FDA-Public Use
  Company Number: AR-PFIZER INC-202200229075

PATIENT
  Age: 71 Year
  Sex: Male

DRUGS (1)
  1. SUTENT [Suspect]
     Active Substance: SUNITINIB MALATE
     Dosage: UNK

REACTIONS (8)
  - Aortic arteriosclerosis [Unknown]
  - Rib fracture [Unknown]
  - Lymphadenopathy [Unknown]
  - Increased bronchial secretion [Unknown]
  - Pulmonary granuloma [Unknown]
  - Nodule [Unknown]
  - Spinal osteoarthritis [Unknown]
  - Exostosis [Unknown]
